FAERS Safety Report 25859221 (Version 5)
Quarter: 2025Q4

REPORT INFORMATION
  Report Type: Spontaneous
  Country: CA (occurrence: CA)
  Receive Date: 20250929
  Receipt Date: 20251111
  Transmission Date: 20260117
  Serious: Yes (Other)
  Sender: PFIZER
  Company Number: CA-PFIZER INC-202500175954

PATIENT
  Age: 67 Year
  Sex: Female

DRUGS (7)
  1. IXIFI [Suspect]
     Active Substance: INFLIXIMAB-QBTX
     Indication: Psoriatic arthropathy
     Dosage: 5 MG/KG EVERY 8 WEEKS
     Route: 042
     Dates: start: 20250515
  2. IXIFI [Suspect]
     Active Substance: INFLIXIMAB-QBTX
     Dosage: 5 MG/KG EVERY 8 WEEKS
     Route: 042
     Dates: start: 20250710
  3. IXIFI [Suspect]
     Active Substance: INFLIXIMAB-QBTX
     Dosage: 5 MG/KG, EVERY 8 WEEKS
     Route: 042
     Dates: start: 20250904
  4. IXIFI [Suspect]
     Active Substance: INFLIXIMAB-QBTX
     Dosage: 325 MG, 16 WEEKS AND 6 DAYS (5 MG/KG, EVERY 8 WEEKS)
     Route: 042
     Dates: start: 20251105
  5. LEUCOVORIN [Concomitant]
     Active Substance: LEUCOVORIN\LEUCOVORIN CALCIUM
     Dosage: 1 DF
  6. METHOTREXATE [Concomitant]
     Active Substance: METHOTREXATE
     Dosage: 10 MG
  7. PREGABALIN [Concomitant]
     Active Substance: PREGABALIN
     Dosage: 1 DF

REACTIONS (10)
  - Small intestinal haemorrhage [Unknown]
  - Anaemia [Recovered/Resolved]
  - Diarrhoea [Not Recovered/Not Resolved]
  - Abdominal pain [Recovered/Resolved]
  - Abdominal distension [Not Recovered/Not Resolved]
  - Anal fissure [Recovered/Resolved]
  - Pyrexia [Recovering/Resolving]
  - Vomiting [Unknown]
  - Illness [Unknown]
  - Upper respiratory tract infection [Recovering/Resolving]

NARRATIVE: CASE EVENT DATE: 20250101
